FAERS Safety Report 13177871 (Version 1)
Quarter: 2017Q1

REPORT INFORMATION
  Report Type: Spontaneous
  Country: PR (occurrence: PR)
  Receive Date: 20170201
  Receipt Date: 20170201
  Transmission Date: 20170428
  Serious: Yes (Hospitalization)
  Sender: FDA-Public Use
  Company Number: PR-BAXTER-2017BAX004068

PATIENT
  Age: 29 Year
  Sex: Male

DRUGS (2)
  1. TISSEEL VH S/D [Suspect]
     Active Substance: APROTININ\CALCIUM CHLORIDE\FIBRINOGEN HUMAN\FACTOR XIII CONCENTRATE (HUMAN)\THROMBIN
     Indication: COLOSTOMY CLOSURE
     Route: 065
     Dates: start: 20170110, end: 20170110
  2. TISSEEL VH S/D [Suspect]
     Active Substance: APROTININ\CALCIUM CHLORIDE\FIBRINOGEN HUMAN\FACTOR XIII CONCENTRATE (HUMAN)\THROMBIN
     Indication: ABDOMINAL OPERATION

REACTIONS (2)
  - Thrombosis [Recovered/Resolved]
  - Postoperative wound complication [None]

NARRATIVE: CASE EVENT DATE: 20170115
